FAERS Safety Report 7479533-X (Version None)
Quarter: 2011Q2

REPORT INFORMATION
  Report Type: 
  Country: None (occurrence: None)
  Receive Date: 20110513
  Receipt Date: 20110510
  Transmission Date: 20111010
  Serious: Yes (Other)
  Sender: FDA-Public Use
  Company Number: US-ABBOTT-11P-163-0724971-00

PATIENT
  Sex: Male
  Weight: 79.45 kg

DRUGS (3)
  1. HUMIRA [Suspect]
     Indication: CROHN'S DISEASE
     Route: 058
     Dates: start: 20101228
  2. NASONEX [Concomitant]
     Indication: PRODUCT USED FOR UNKNOWN INDICATION
     Dosage: TWO PUFFS TWICE DAILY AS NEEDED
  3. ZYRTEC [Concomitant]
     Indication: PRODUCT USED FOR UNKNOWN INDICATION

REACTIONS (11)
  - INJECTION SITE ERYTHEMA [None]
  - ILEITIS [None]
  - INJECTION SITE REACTION [None]
  - ABDOMINAL PAIN [None]
  - INJECTION SITE HAEMATOMA [None]
  - INJECTION SITE RASH [None]
  - GASTRIC ULCER [None]
  - HYPERSENSITIVITY [None]
  - SMALL INTESTINAL OBSTRUCTION [None]
  - INJECTION SITE PAIN [None]
  - HEPATIC ENZYME INCREASED [None]
